FAERS Safety Report 4523938-3 (Version None)
Quarter: 2004Q4

REPORT INFORMATION
  Report Type: 
  Country: None (occurrence: None)
  Receive Date: 20041209
  Receipt Date: 20041130
  Transmission Date: 20050328
  Serious: Yes (Disabling)
  Sender: FDA-Public Use
  Company Number: 2004UW24506

PATIENT
  Sex: Male

DRUGS (1)
  1. CRESTOR [Suspect]
     Dates: start: 20040601

REACTIONS (4)
  - DIFFICULTY IN WALKING [None]
  - HYPOAESTHESIA [None]
  - MUSCULAR WEAKNESS [None]
  - MYALGIA [None]
